FAERS Safety Report 24613434 (Version 8)
Quarter: 2025Q1

REPORT INFORMATION
  Report Type: Spontaneous
  Country: CZ (occurrence: CZ)
  Receive Date: 20241113
  Receipt Date: 20250123
  Transmission Date: 20250409
  Serious: Yes (Other)
  Sender: PFIZER
  Company Number: CZ-PFIZER INC-PV202400146289

PATIENT
  Age: 66 Year
  Sex: Male

DRUGS (8)
  1. TRASTUZUMAB [Suspect]
     Active Substance: TRASTUZUMAB
     Indication: Gallbladder cancer
     Dates: start: 202312
  2. TRASTUZUMAB [Suspect]
     Active Substance: TRASTUZUMAB
     Dates: start: 202312
  3. TUCATINIB [Suspect]
     Active Substance: TUCATINIB
     Indication: Gallbladder cancer
     Dates: start: 202312
  4. CISPLATIN [Suspect]
     Active Substance: CISPLATIN
     Indication: Gallbladder cancer
  5. GEMCITABINE [Suspect]
     Active Substance: GEMCITABINE
     Indication: Gallbladder cancer
  6. CAPECITABINE [Suspect]
     Active Substance: CAPECITABINE
     Indication: Gallbladder cancer
  7. TRASTUZUMAB DERUXTECAN [Suspect]
     Active Substance: TRASTUZUMAB DERUXTECAN
     Indication: Gallbladder cancer
  8. PEMBROLIZUMAB [Suspect]
     Active Substance: PEMBROLIZUMAB
     Indication: Gallbladder cancer

REACTIONS (2)
  - Autoimmune hypothyroidism [Unknown]
  - Off label use [Unknown]
